FAERS Safety Report 8008480-X (Version None)
Quarter: 2011Q4

REPORT INFORMATION
  Report Type: 
  Country: None (occurrence: None)
  Receive Date: 20111227
  Receipt Date: 20111221
  Transmission Date: 20120403
  Serious: Yes (Death, Hospitalization, Other)
  Sender: FDA-Public Use
  Company Number: JP-B.I. PHARMACEUTICALS,INC./RIDGEFIELD-2011-BP-27313NB

PATIENT
  Sex: Female
  Weight: 51.2 kg

DRUGS (9)
  1. DIGOXIN [Concomitant]
     Dosage: 0.125 MG
     Route: 048
     Dates: end: 20111128
  2. PRADAXA [Suspect]
     Indication: ATRIAL FIBRILLATION
     Dosage: 220 MG
     Route: 048
     Dates: start: 20111119, end: 20111123
  3. BISOPROLOL FUMARATE [Suspect]
     Dosage: 5 MG
     Route: 048
     Dates: start: 20111008, end: 20111119
  4. ALDACTONE [Concomitant]
     Dosage: 25 MG
     Route: 048
     Dates: end: 20111128
  5. ALLOPURINOL [Concomitant]
     Dosage: 100 MG
     Route: 048
     Dates: end: 20111128
  6. VERAPAMIL HCL [Concomitant]
     Dosage: 80 MG
     Route: 048
     Dates: end: 20111128
  7. YODEL-S [Concomitant]
     Dosage: 80 MG
     Route: 048
     Dates: end: 20111128
  8. SELBEX [Concomitant]
     Dosage: 150 MG
     Route: 048
     Dates: end: 20111128
  9. DIART [Concomitant]
     Dosage: 60 MG
     Route: 048
     Dates: end: 20111128

REACTIONS (8)
  - MULTI-ORGAN FAILURE [None]
  - RENAL FAILURE [None]
  - ABDOMINAL PAIN UPPER [None]
  - SHOCK [None]
  - HEPATIC FUNCTION ABNORMAL [None]
  - NAUSEA [None]
  - ATELECTASIS [None]
  - FALL [None]
